FAERS Safety Report 6127064-1 (Version None)
Quarter: 2009Q1

REPORT INFORMATION
  Report Type: 
  Country: None (occurrence: None)
  Receive Date: 20090320
  Receipt Date: 20090312
  Transmission Date: 20090719
  Serious: Yes (Hospitalization)
  Sender: FDA-Public Use
  Company Number: DE-B.I. PHARMACEUTICALS,INC./RIDGEFIELD-2009-DE-02243DE

PATIENT
  Age: 70 Year
  Sex: Female
  Weight: 88 kg

DRUGS (4)
  1. MICARDIS HCT [Suspect]
     Dosage: 1ANZ
     Route: 048
  2. LEVOTHYROXINE SODIUM [Concomitant]
     Dosage: 1ANZ
  3. RASILEZ 150 MG [Concomitant]
     Dosage: 2ANZ
  4. LORMATAZEPAM [Concomitant]

REACTIONS (3)
  - COAGULOPATHY [None]
  - HAEMORRHAGE [None]
  - WOUND HAEMORRHAGE [None]
